FAERS Safety Report 8079362-2 (Version None)
Quarter: 2012Q1

REPORT INFORMATION
  Report Type: 
  Country: None (occurrence: None)
  Receive Date: 20120124
  Receipt Date: 20120118
  Transmission Date: 20120608
  Serious: Yes (Other)
  Sender: FDA-Public Use
  Company Number: LOC-00993

PATIENT
  Age: 77 Year
  Sex: Male

DRUGS (1)
  1. LOCOID LIPOCREAM [Suspect]
     Indication: RASH
     Dosage: APPLY A SMALL AMOUNT TO TIP OF PENIS, ONCE, TOPICAL
     Route: 061
     Dates: start: 20111201, end: 20111201

REACTIONS (3)
  - APPLICATION SITE PAIN [None]
  - APPLICATION SITE ERYTHEMA [None]
  - APPLICATION SITE BLEEDING [None]
